FAERS Safety Report 5347611-7 (Version None)
Quarter: 2007Q2

REPORT INFORMATION
  Report Type: 
  Country: None (occurrence: None)
  Receive Date: 20070604
  Receipt Date: 20070604
  Transmission Date: 20071010
  Serious: Yes (Other)
  Sender: FDA-Public Use
  Company Number: None

PATIENT
  Age: 44 Year
  Sex: Female
  Weight: 99.7913 kg

DRUGS (2)
  1. BUDEPRION XL 300 MG TEVO [Suspect]
     Indication: MAJOR DEPRESSION
     Dosage: 1 1X PER DAY PO
     Route: 048
  2. BEDEPRION SR 150 MG IMPAX [Suspect]
     Indication: MAJOR DEPRESSION
     Dosage: 3 3X PER DAY PO
     Route: 048

REACTIONS (4)
  - ASTHENIA [None]
  - DRUG INEFFECTIVE [None]
  - DYSPEPSIA [None]
  - PHARMACEUTICAL PRODUCT COMPLAINT [None]
